FAERS Safety Report 25189243 (Version 1)
Quarter: 2025Q2

REPORT INFORMATION
  Report Type: Spontaneous
  Country: CN (occurrence: CN)
  Receive Date: 20250411
  Receipt Date: 20250411
  Transmission Date: 20250717
  Serious: Yes (Life-Threatening, Hospitalization, Other)
  Sender: RANBAXY
  Company Number: CN-SUN PHARMACEUTICAL INDUSTRIES LTD-2025R1-497689

PATIENT
  Age: 50 Year
  Sex: Male

DRUGS (1)
  1. DICLOFENAC [Suspect]
     Active Substance: DICLOFENAC
     Indication: Arthritis
     Route: 048
     Dates: start: 202403

REACTIONS (1)
  - Condition aggravated [Unknown]
